FAERS Safety Report 25863436 (Version 1)
Quarter: 2025Q3

REPORT INFORMATION
  Report Type: Spontaneous
  Country: US (occurrence: US)
  Receive Date: 20250930
  Receipt Date: 20250930
  Transmission Date: 20251020
  Serious: Yes (Hospitalization)
  Sender: RANBAXY
  Company Number: US-SUN PHARMACEUTICAL INDUSTRIES INC-2025R1-527469

PATIENT
  Age: 71 Year
  Sex: Female

DRUGS (2)
  1. BACLOFEN [Suspect]
     Active Substance: BACLOFEN
     Indication: Multiple sclerosis
     Route: 037
  2. CLONIDINE [Concomitant]
     Active Substance: CLONIDINE
     Indication: Multiple sclerosis
     Route: 037

REACTIONS (5)
  - Coma [Recovering/Resolving]
  - Toxicity to various agents [Unknown]
  - Pulseless electrical activity [Recovering/Resolving]
  - Generalised tonic-clonic seizure [Recovered/Resolved]
  - Overdose [Unknown]
